FAERS Safety Report 14370538 (Version 4)
Quarter: 2021Q2

REPORT INFORMATION
  Report Type: Spontaneous
  Country: US (occurrence: US)
  Receive Date: 20180110
  Receipt Date: 20210618
  Transmission Date: 20210716
  Serious: No
  Sender: FDA-Public Use
  Company Number: US-PFIZER INC-2018005305

PATIENT
  Age: 6 Year
  Sex: Female

DRUGS (4)
  1. GENOTROPIN [Suspect]
     Active Substance: SOMATROPIN
     Indication: TURNER^S SYNDROME
     Dosage: 0.7 ML, 1X/DAY
     Route: 058
  2. SIMILASAN FOR INFLAMMATION OF THE MOUTH AND THROAT [Concomitant]
     Active Substance: HOMEOPATHICS
     Indication: UPPER RESPIRATORY TRACT CONGESTION
     Dosage: 2.5 ML, AS NEEDED
  3. GENOTROPIN [Suspect]
     Active Substance: SOMATROPIN
     Dosage: 1 MG
  4. GENOTROPIN [Suspect]
     Active Substance: SOMATROPIN
     Indication: BLOOD GROWTH HORMONE ABNORMAL
     Dosage: 0.6 MG, 1X/DAY (0.6MG TAKES IT ONCE AT NIGHT INJECTION IN UPPER LEG)

REACTIONS (6)
  - Influenza [Not Recovered/Not Resolved]
  - Device power source issue [Unknown]
  - Device breakage [Unknown]
  - Poor quality device used [Unknown]
  - Drug dose omission by device [Unknown]
  - Product storage error [Unknown]

NARRATIVE: CASE EVENT DATE: 20180102
